FAERS Safety Report 7218211-9 (Version None)
Quarter: 2011Q1

REPORT INFORMATION
  Report Type: 
  Country: None (occurrence: None)
  Receive Date: 20110110
  Receipt Date: 20080208
  Transmission Date: 20110831
  Serious: Yes (Hospitalization, Other)
  Sender: FDA-Public Use
  Company Number: PHRM2008FR00793

PATIENT
  Sex: Female

DRUGS (10)
  1. SINTROM [Suspect]
     Dosage: 2 MG, QD
     Route: 048
     Dates: start: 20080107, end: 20080108
  2. LANTUS [Concomitant]
  3. CALCIPARINE [Concomitant]
     Indication: ATRIAL FIBRILLATION
     Dosage: 7500 IU, TID
     Dates: start: 20080103, end: 20080104
  4. RIVOTRIL [Concomitant]
  5. VASTAREL ^SERVIER^ [Concomitant]
  6. TAREG [Suspect]
     Indication: ESSENTIAL HYPERTENSION
     Dosage: 80 MG, QD
     Route: 048
     Dates: end: 20080112
  7. SINTROM [Suspect]
     Indication: ATRIAL FIBRILLATION
     Dosage: LESS THAN 2 MG/DAY
     Route: 048
     Dates: start: 20080105, end: 20080107
  8. CRESTOR [Suspect]
     Route: 048
     Dates: end: 20080112
  9. CELECTOL [Concomitant]
  10. IKOREL [Concomitant]

REACTIONS (19)
  - FALL [None]
  - CONTUSION [None]
  - LOSS OF CONSCIOUSNESS [None]
  - ANURIA [None]
  - BLOOD CREATINE PHOSPHOKINASE INCREASED [None]
  - DIABETES MELLITUS [None]
  - ATRIAL FIBRILLATION [None]
  - RENAL FAILURE ACUTE [None]
  - RALES [None]
  - BLOOD POTASSIUM INCREASED [None]
  - INTRA-ABDOMINAL HAEMATOMA [None]
  - ANAEMIA MACROCYTIC [None]
  - BLOOD CREATININE INCREASED [None]
  - HYPERGLYCAEMIA [None]
  - HYPOVOLAEMIC SHOCK [None]
  - BLOOD PRESSURE IMMEASURABLE [None]
  - OEDEMA PERIPHERAL [None]
  - BLOOD UREA INCREASED [None]
  - PULSE ABSENT [None]
